FAERS Safety Report 11871510 (Version 1)
Quarter: 2015Q4

REPORT INFORMATION
  Report Type: Spontaneous
  Country: US (occurrence: US)
  Receive Date: 20151228
  Receipt Date: 20151228
  Transmission Date: 20160305
  Serious: No
  Sender: FDA-Public Use
  Company Number: US-MEDA-2015120071

PATIENT
  Age: 44 Year
  Sex: Male
  Weight: 54 kg

DRUGS (3)
  1. SUBOXONE [Concomitant]
     Active Substance: BUPRENORPHINE HYDROCHLORIDE\NALOXONE HYDROCHLORIDE
     Dosage: 8/2 MG
  2. CLONAZEPAM. [Concomitant]
     Active Substance: CLONAZEPAM
  3. CESAMET [Suspect]
     Active Substance: NABILONE
     Indication: DRUG REHABILITATION
     Route: 048
     Dates: start: 20151023

REACTIONS (2)
  - Drug screen positive [Not Recovered/Not Resolved]
  - Off label use [Not Recovered/Not Resolved]

NARRATIVE: CASE EVENT DATE: 20151023
